FAERS Safety Report 4775057-9 (Version None)
Quarter: 2005Q3

REPORT INFORMATION
  Report Type: 
  Country: None (occurrence: None)
  Receive Date: 20050920
  Receipt Date: 20050902
  Transmission Date: 20060218
  Serious: Yes (Hospitalization)
  Sender: FDA-Public Use
  Company Number: 216306

PATIENT
  Age: 68 Year
  Sex: Female
  Weight: 111.2 kg

DRUGS (16)
  1. AVASTIN [Suspect]
     Indication: COLON CANCER
     Dosage: 556 MG, Q2W, INTRAVENOUS
     Route: 042
     Dates: start: 20050623
  2. OXALIPLATIN(OXALIPLATIN) [Suspect]
     Indication: COLON CANCER
     Dosage: 143 MG, Q2W, INTRAVENOUS
     Route: 042
     Dates: start: 20050623
  3. FLUOROURACIL [Suspect]
     Indication: COLON CANCER
     Dosage: 660 MG,  Q2W, INTRAVENOUS
     Route: 042
     Dates: start: 20050623
  4. LEUCOVORIN CALCIUM [Suspect]
     Indication: COLON CANCER
     Dosage: 408 MG, Q2W, INTRAVENOUS
     Route: 042
     Dates: start: 20050623
  5. PANTOLOC (PANTOPRAZOLE) [Concomitant]
  6. UNKNOWN MEDICATION (GENERIC COMPONENT(S) [Concomitant]
  7. ARTHROTEC [Concomitant]
  8. ELTROXIN (LEVOTHYROXINE SODIUM) [Concomitant]
  9. HYDROCHLOROTHIAZIDE [Concomitant]
  10. FOSAMAX [Concomitant]
  11. DIOVAN [Concomitant]
  12. MAXERAN (METOCLOPRAMIDE HYDROCHLORIDE) [Concomitant]
  13. LASIX [Concomitant]
  14. POTASSIUM CHLORIDE [Concomitant]
  15. MAGNESIUM-ROUGIER (MAGNESIUM GLUCEPTATE) [Concomitant]
  16. MOUTHWASH NOS (MOUTHWASH NOS) [Concomitant]

REACTIONS (5)
  - DIARRHOEA [None]
  - HYPOCALCAEMIA [None]
  - HYPOKALAEMIA [None]
  - HYPOMAGNESAEMIA [None]
  - NEUTROPHIL COUNT DECREASED [None]
